FAERS Safety Report 6619467-3 (Version None)
Quarter: 2010Q1

REPORT INFORMATION
  Report Type: 
  Country: None (occurrence: None)
  Receive Date: 20100309
  Receipt Date: 20100226
  Transmission Date: 20100710
  Serious: Yes (Other)
  Sender: FDA-Public Use
  Company Number: GR-JNJFOC-20100300531

PATIENT
  Age: 37 Year
  Sex: Male

DRUGS (5)
  1. INFLIXIMAB [Suspect]
     Indication: ANKYLOSING SPONDYLITIS
     Route: 042
  2. HUMIRA [Suspect]
     Indication: ANKYLOSING SPONDYLITIS
     Route: 058
  3. METHOTREXATE [Concomitant]
     Indication: ANKYLOSING SPONDYLITIS
  4. METHOTREXATE [Concomitant]
  5. FILICINE [Concomitant]

REACTIONS (2)
  - NEPHRECTOMY [None]
  - RENAL CELL CARCINOMA [None]
